FAERS Safety Report 21371942 (Version 1)
Quarter: 2022Q3

REPORT INFORMATION
  Report Type: Spontaneous
  Country: CH (occurrence: CH)
  Receive Date: 20220923
  Receipt Date: 20220923
  Transmission Date: 20221026
  Serious: Yes (Hospitalization)
  Sender: FDA-Public Use
  Company Number: None

PATIENT
  Age: 23 Year
  Sex: Female

DRUGS (13)
  1. REMERON [Suspect]
     Active Substance: MIRTAZAPINE
     Dosage: 15MG 1X/D P.O.
     Route: 048
     Dates: end: 20220815
  2. TORADOL [Suspect]
     Active Substance: KETOROLAC TROMETHAMINE
     Dosage: UNK
     Dates: start: 20220815, end: 20220815
  3. TRAMADOL [Suspect]
     Active Substance: TRAMADOL
     Dosage: UNK
     Dates: start: 20220815, end: 20220815
  4. FLURAZEPAM HYDROCHLORIDE [Suspect]
     Active Substance: FLURAZEPAM HYDROCHLORIDE
     Dosage: 30 MG 1X/D P.O
     Route: 048
     Dates: end: 20220815
  5. LAMICTAL [Suspect]
     Active Substance: LAMOTRIGINE
     Dosage: 150MG MORNING AND 200MG IN EVENING
     Dates: end: 20220815
  6. QUETIAPINE [Suspect]
     Active Substance: QUETIAPINE
     Dosage: 300MG 2X/D P.O. + 50MG 2X/D MAX ON RESERVE P.O.
     Route: 048
     Dates: end: 20220815
  7. LORAZEPAM [Suspect]
     Active Substance: LORAZEPAM
     Dosage: 1MG 3X/D P.O.
     Route: 048
  8. TIVICAY [Concomitant]
     Active Substance: DOLUTEGRAVIR SODIUM
     Indication: High risk sexual behaviour
     Dosage: UNK
     Route: 048
  9. TRUVADA [Concomitant]
     Active Substance: EMTRICITABINE\TENOFOVIR DISOPROXIL FUMARATE
     Indication: High risk sexual behaviour
     Dosage: UNK
     Route: 048
  10. BUTYLSCOPOLAMINE BROMIDE [Concomitant]
     Active Substance: BUTYLSCOPOLAMINE BROMIDE
     Dosage: AS NECESSARY
     Route: 048
  11. HALDOL DECANOATE [Concomitant]
     Active Substance: HALOPERIDOL DECANOATE
     Dosage: AS NECESSARY
     Route: 048
  12. METOCLOPRAMIDE HYDROCHLORIDE [Concomitant]
     Active Substance: METOCLOPRAMIDE HYDROCHLORIDE
     Dosage: AS NECESSARY
     Route: 048
  13. DAFALGAN [Concomitant]
     Active Substance: ACETAMINOPHEN
     Dosage: AS NECESSARY
     Route: 048

REACTIONS (2)
  - Altered state of consciousness [Recovered/Resolved]
  - Intentional overdose [Recovered/Resolved]

NARRATIVE: CASE EVENT DATE: 20220815
